FAERS Safety Report 18206883 (Version 2)
Quarter: 2020Q3

REPORT INFORMATION
  Report Type: Spontaneous
  Country: MX (occurrence: MX)
  Receive Date: 20200828
  Receipt Date: 20200904
  Transmission Date: 20201103
  Serious: Yes (Hospitalization, Other)
  Sender: FDA-Public Use
  Company Number: MX-ALKEM LABORATORIES LIMITED-MX-ALKEM-2020-05301

PATIENT
  Age: 57 Year
  Sex: Male

DRUGS (5)
  1. TACROLIMUS. [Suspect]
     Active Substance: TACROLIMUS
     Indication: PROPHYLAXIS AGAINST GRAFT VERSUS HOST DISEASE
     Dosage: UNK, QD
     Route: 048
  2. MYCOPHENOLATE MOFETIL. [Suspect]
     Active Substance: MYCOPHENOLATE MOFETIL
     Indication: PROPHYLAXIS AGAINST GRAFT VERSUS HOST DISEASE
     Dosage: UNK, QD
     Route: 048
     Dates: start: 2014
  3. PREDNISONE. [Suspect]
     Active Substance: PREDNISONE
     Indication: PROPHYLAXIS AGAINST GRAFT VERSUS HOST DISEASE
     Dosage: UNK, QD
     Route: 065
     Dates: start: 2014
  4. CICLOSPORIN [Suspect]
     Active Substance: CYCLOSPORINE
     Indication: PROPHYLAXIS AGAINST GRAFT VERSUS HOST DISEASE
     Dosage: UNK, QD
     Route: 065
     Dates: start: 2014
  5. THALIDOMIDE [Suspect]
     Active Substance: THALIDOMIDE
     Indication: PROPHYLAXIS AGAINST GRAFT VERSUS HOST DISEASE
     Dosage: UNK, QD
     Route: 065
     Dates: start: 2014, end: 2014

REACTIONS (16)
  - Gastrointestinal infection [Unknown]
  - Diarrhoea [Recovered/Resolved]
  - Metabolic disorder [Unknown]
  - Gastritis [Unknown]
  - Renal injury [Unknown]
  - Upper respiratory tract infection [Unknown]
  - Vomiting [Recovered/Resolved]
  - Mucosal inflammation [Recovered/Resolved]
  - Epstein-Barr virus infection [Unknown]
  - Nausea [Recovered/Resolved]
  - Condition aggravated [Recovering/Resolving]
  - Graft versus host disease in skin [Recovering/Resolving]
  - Neutropenia [Recovered/Resolved]
  - Infection [Unknown]
  - Gastrointestinal toxicity [Recovered/Resolved]
  - Pyrexia [Recovered/Resolved]
